FAERS Safety Report 14011106 (Version 1)
Quarter: 2017Q3

REPORT INFORMATION
  Report Type: Spontaneous
  Country: US (occurrence: US)
  Receive Date: 20170926
  Receipt Date: 20170926
  Transmission Date: 20171128
  Serious: No
  Sender: FDA-Public Use
  Company Number: US-PFIZER INC-2017411308

PATIENT
  Sex: Female

DRUGS (1)
  1. PHENELZINE SULFATE. [Suspect]
     Active Substance: PHENELZINE SULFATE
     Dosage: 15 MG, TABLET
     Route: 048

REACTIONS (5)
  - Weight increased [Unknown]
  - Drug effect decreased [Unknown]
  - Product coating issue [Unknown]
  - Abdominal discomfort [Unknown]
  - Hypotension [Unknown]
